FAERS Safety Report 9293999 (Version 1)
Quarter: 2013Q1

REPORT INFORMATION
  Report Type: Spontaneous
  Country: US (occurrence: None)
  Receive Date: 20121221
  Receipt Date: 20121221
  Transmission Date: 20140127
  Serious: Yes (Other)
  Sender: FDA-Public Use
  Company Number: PHEH2012US000646

PATIENT
  Age: 52 Year
  Sex: Female

DRUGS (7)
  1. RITALIN [Suspect]
     Indication: NARCOLEPSY
  2. RITALIN [Suspect]
     Indication: CATAPLEXY
  3. METHYLIN [Suspect]
  4. ADDERALL XR (AMFETAMINE ASPARTATE, AMFETAMINE SULFATE, DEXAMFETAMINE, SACCHARATE, DEXAMFETAMINE SULFATE) [Concomitant]
  5. EFEXOR XR (VENLAFAXINE) [Concomitant]
  6. RELPAX (ELETRIPTAN HYDROBROMIDE) [Concomitant]
  7. TYLENOL (PARACETAMOL) [Concomitant]

REACTIONS (1)
  - Withdrawal syndrome [None]
